FAERS Safety Report 8520082-5 (Version None)
Quarter: 2012Q3

REPORT INFORMATION
  Report Type: 
  Country: None (occurrence: None)
  Receive Date: 20120719
  Receipt Date: 20120308
  Transmission Date: 20120928
  Serious: Yes (Other)
  Sender: FDA-Public Use
  Company Number: US-PFIZER INC-2012169226

PATIENT

DRUGS (3)
  1. CELEXA [Suspect]
     Dosage: UNK
  2. ZYVOX [Suspect]
     Dosage: UNK
  3. SEROQUEL [Suspect]
     Dosage: UNK

REACTIONS (1)
  - SEROTONIN SYNDROME [None]
